FAERS Safety Report 20441635 (Version 1)
Quarter: 2022Q1

REPORT INFORMATION
  Report Type: Spontaneous
  Country: CN (occurrence: CN)
  Receive Date: 20220208
  Receipt Date: 20220208
  Transmission Date: 20220423
  Serious: Yes (Other)
  Sender: FDA-Public Use
  Company Number: CN-SUN PHARMACEUTICAL INDUSTRIES LTD-2022R1-325323

PATIENT
  Age: 53 Year
  Sex: Female

DRUGS (6)
  1. CAPECITABINE [Suspect]
     Active Substance: CAPECITABINE
     Indication: Metastases to liver
     Dosage: 1250 MILLIGRAM/SQ. METER, BID, DAYS 1-14, EVERY 3 WEEKS
     Route: 065
     Dates: start: 201806
  2. DOCETAXEL [Suspect]
     Active Substance: DOCETAXEL
     Indication: Metastases to liver
     Dosage: 75 MILLIGRAM/SQ. METER, ONCE EVERY 3 WEEKS
     Route: 065
     Dates: start: 201806
  3. LAPATINIB [Suspect]
     Active Substance: LAPATINIB
     Indication: Metastases to liver
     Dosage: 1250 MILLIGRAM, DAILY, 4 COURSES
     Route: 065
     Dates: start: 201806
  4. PLATINUM [Suspect]
     Active Substance: PLATINUM
     Indication: Metastases to liver
     Dosage: UNK
     Route: 065
     Dates: start: 201806
  5. TRASTUZUMAB [Suspect]
     Active Substance: TRASTUZUMAB
     Indication: Metastases to liver
     Dosage: 75 MILLIGRAM/SQ. METER, ONCE EVERY 3 WEEKS
     Route: 065
     Dates: start: 201806
  6. VINORELBINE [Suspect]
     Active Substance: VINORELBINE TARTRATE
     Indication: Metastases to liver
     Dosage: 25 MILLIGRAM/SQ. METER, DAYS 1 AND 8, EVERY 3 WEEKS
     Route: 065
     Dates: start: 201806

REACTIONS (1)
  - Therapy partial responder [Unknown]

NARRATIVE: CASE EVENT DATE: 20180601
